FAERS Safety Report 4441234-X (Version None)
Quarter: 2004Q3

REPORT INFORMATION
  Report Type: 
  Country: None (occurrence: None)
  Receive Date: 20040728
  Receipt Date: 20040220
  Transmission Date: 20050211
  Serious: No
  Sender: FDA-Public Use
  Company Number: USA040259999

PATIENT
  Sex: Male

DRUGS (3)
  1. STRATTERA [Suspect]
     Dosage: 80 MG/1 DAY
     Dates: start: 20040215, end: 20040219
  2. WELLBUTRIN [Concomitant]
  3. COUMADIN [Concomitant]

REACTIONS (2)
  - TESTICULAR DISORDER [None]
  - TESTICULAR PAIN [None]
